FAERS Safety Report 7916776-2 (Version None)
Quarter: 2011Q4

REPORT INFORMATION
  Report Type: 
  Country: None (occurrence: None)
  Receive Date: 20111116
  Receipt Date: 20111104
  Transmission Date: 20120403
  Serious: Yes (Hospitalization, Other)
  Sender: FDA-Public Use
  Company Number: JP-ELI_LILLY_AND_COMPANY-JP201110004243

PATIENT
  Sex: Male
  Weight: 105 kg

DRUGS (10)
  1. AMARYL [Concomitant]
     Indication: TYPE 2 DIABETES MELLITUS
     Dosage: 0.5 MG, QD
     Route: 048
     Dates: end: 20111003
  2. JANUVIA [Concomitant]
     Indication: TYPE 2 DIABETES MELLITUS
     Dosage: 50 MG, QD
     Route: 048
     Dates: end: 20111002
  3. ASPIRIN [Concomitant]
     Indication: ACUTE MYOCARDIAL INFARCTION
     Dosage: 100 MG, EACH MORNING
     Route: 048
  4. BYETTA [Suspect]
     Indication: TYPE 2 DIABETES MELLITUS
     Dosage: 5 UG, BID
     Route: 058
     Dates: start: 20111003, end: 20111013
  5. SIGMART [Concomitant]
     Indication: ACUTE MYOCARDIAL INFARCTION
     Dosage: 5 MG, TID
     Route: 048
  6. DIART [Concomitant]
     Dosage: 30 MG, QD
     Route: 048
  7. LIVALO [Concomitant]
     Dosage: 2 MG, EACH EVENING
     Route: 048
  8. DOXAZOSIN MESYLATE [Concomitant]
     Dosage: 4 MG, BID
     Route: 048
  9. ALMARL [Concomitant]
     Dosage: 10 MG, BID
     Route: 048
  10. NEUFAN [Concomitant]
     Dosage: 100 MG, BID
     Route: 048

REACTIONS (2)
  - GASTRIC ULCER HAEMORRHAGE [None]
  - TAKAYASU'S ARTERITIS [None]
